FAERS Safety Report 7297658-9 (Version None)
Quarter: 2011Q1

REPORT INFORMATION
  Report Type: 
  Country: None (occurrence: None)
  Receive Date: 20110216
  Receipt Date: 20110214
  Transmission Date: 20110831
  Serious: Yes (Disabling)
  Sender: FDA-Public Use
  Company Number: DE-MERCK-1102DEU00058

PATIENT
  Age: 88 Year
  Sex: Female

DRUGS (9)
  1. NITRENDIPINE [Concomitant]
     Route: 048
  2. BISOPROLOL [Concomitant]
     Route: 048
  3. TRUSOPT [Suspect]
     Indication: GLAUCOMA
     Route: 047
     Dates: start: 20101217
  4. TRUSOPT [Suspect]
     Indication: MACULAR DEGENERATION
     Route: 047
     Dates: start: 20101217
  5. TAFLUPROST [Concomitant]
     Route: 047
     Dates: start: 20100101
  6. LEVOTHYROXINE SODIUM [Concomitant]
     Route: 048
  7. PHENPROCOUMON [Concomitant]
     Indication: CEREBROVASCULAR ACCIDENT
     Route: 048
  8. CALCIUM CARBONATE AND CHOLECALCIFEROL [Concomitant]
     Route: 048
  9. MAGNESIUM SULFATE [Concomitant]
     Route: 048

REACTIONS (6)
  - BLOOD PRESSURE DECREASED [None]
  - HEADACHE [None]
  - ERUCTATION [None]
  - SOMNOLENCE [None]
  - NAUSEA [None]
  - DYSPNOEA [None]
